FAERS Safety Report 19942230 (Version 1)
Quarter: 2021Q4

REPORT INFORMATION
  Report Type: Spontaneous
  Country: US (occurrence: US)
  Receive Date: 20211012
  Receipt Date: 20211012
  Transmission Date: 20220303
  Serious: No
  Sender: FDA-Public Use
  Company Number: US-AMGEN-USASP2021155364

PATIENT
  Age: 57 Year
  Sex: Female

DRUGS (3)
  1. OTEZLA [Suspect]
     Active Substance: APREMILAST
     Indication: Psoriasis
     Dosage: 30 MILLIGRAM, BID
     Route: 048
     Dates: start: 20210603
  2. OTEZLA [Suspect]
     Active Substance: APREMILAST
     Indication: Off label use
  3. BACTRIM DS [Concomitant]
     Active Substance: SULFAMETHOXAZOLE\TRIMETHOPRIM

REACTIONS (3)
  - Off label use [Unknown]
  - Drug ineffective [Unknown]
  - Hidradenitis [Unknown]

NARRATIVE: CASE EVENT DATE: 20210101
